FAERS Safety Report 10312825 (Version 5)
Quarter: 2014Q4

REPORT INFORMATION
  Report Type: Spontaneous
  Country: JP (occurrence: JP)
  Receive Date: 20140718
  Receipt Date: 20141010
  Transmission Date: 20150528
  Serious: No
  Sender: FDA-Public Use
  Company Number: JP-JNJFOC-20140619216

PATIENT
  Age: 75 Year
  Sex: Male

DRUGS (1)
  1. STELARA [Suspect]
     Active Substance: USTEKINUMAB
     Indication: PSORIASIS
     Route: 058
     Dates: start: 20140513, end: 20140513

REACTIONS (1)
  - Cell marker increased [Recovering/Resolving]

NARRATIVE: CASE EVENT DATE: 20140610
